FAERS Safety Report 6626258-6 (Version None)
Quarter: 2010Q1

REPORT INFORMATION
  Report Type: 
  Country: None (occurrence: None)
  Receive Date: 20100309
  Receipt Date: 20100309
  Transmission Date: 20100710
  Serious: Yes (Death)
  Sender: FDA-Public Use
  Company Number: None

PATIENT
  Age: 71 Year
  Sex: Male
  Weight: 83.9154 kg

DRUGS (1)
  1. RISPERIDONE [Suspect]

REACTIONS (3)
  - ANAESTHETIC COMPLICATION [None]
  - BRAIN INJURY [None]
  - DEMENTIA [None]
